FAERS Safety Report 5504729-3 (Version None)
Quarter: 2007Q4

REPORT INFORMATION
  Report Type: 
  Country: None (occurrence: None)
  Receive Date: 20071101
  Receipt Date: 20071023
  Transmission Date: 20080405
  Serious: Yes (Other)
  Sender: FDA-Public Use
  Company Number: US-GILEAD-2007-0013980

PATIENT
  Sex: Male

DRUGS (1)
  1. LETAIRIS [Suspect]

REACTIONS (3)
  - DYSPNOEA [None]
  - HYPOTENSION [None]
  - NIGHTMARE [None]
